FAERS Safety Report 24629972 (Version 2)
Quarter: 2024Q4

REPORT INFORMATION
  Report Type: Spontaneous
  Country: CN (occurrence: CN)
  Receive Date: 20241118
  Receipt Date: 20241125
  Transmission Date: 20250114
  Serious: Yes (Hospitalization)
  Sender: NOVARTIS
  Company Number: CN-002147023-NVSC2024CN220481

PATIENT
  Age: 75 Year
  Sex: Male

DRUGS (1)
  1. COSENTYX [Suspect]
     Active Substance: SECUKINUMAB
     Indication: Psoriasis
     Dosage: 2 DOSAGE FORM (2 INJECTION S OF 150MG COSENTYX) (ONCE AN INTERVAL OF ONE WEEK) (INJECT)
     Route: 050
     Dates: start: 20241101, end: 20241108

REACTIONS (8)
  - Coma [Recovering/Resolving]
  - Gastric haemorrhage [Recovered/Resolved]
  - Thrombosis [Recovered/Resolved]
  - Shock [Recovering/Resolving]
  - Oxygen saturation decreased [Unknown]
  - Pneumonia [Unknown]
  - Cerebral infarction [Unknown]
  - Speech disorder [Unknown]

NARRATIVE: CASE EVENT DATE: 20240101
